FAERS Safety Report 5679653-6 (Version None)
Quarter: 2008Q1

REPORT INFORMATION
  Report Type: 
  Country: None (occurrence: None)
  Receive Date: 20080325
  Receipt Date: 20080318
  Transmission Date: 20080703
  Serious: No
  Sender: FDA-Public Use
  Company Number: US-BAXTER-2008BH002397

PATIENT
  Age: 58 Year
  Sex: Male
  Weight: 73 kg

DRUGS (11)
  1. HEPARIN SODIUM [Suspect]
     Indication: PROPHYLAXIS
     Route: 033
     Dates: start: 20071201, end: 20080313
  2. LITHIUM CARBONATE [Concomitant]
     Indication: BIPOLAR DISORDER
     Route: 048
     Dates: start: 19780101
  3. ALLOPURINOL [Concomitant]
     Indication: GOUT
     Dosage: DOSE UNIT:UNKNOWN
     Route: 048
  4. VITAMIN CAP [Concomitant]
     Indication: DRUG USE FOR UNKNOWN INDICATION
     Dosage: DOSE UNIT:UNKNOWN
     Route: 048
  5. DELFLEX [Concomitant]
     Indication: RENAL FAILURE
     Route: 033
     Dates: start: 20071201
  6. COLCHICINE [Concomitant]
     Indication: GOUT
     Route: 048
     Dates: start: 20050101
  7. FEXOFENADINE [Concomitant]
     Indication: HYPERSENSITIVITY
     Route: 048
     Dates: start: 20060101
  8. CARTIA                                  /USA/ [Concomitant]
     Indication: HYPERTENSION
     Route: 048
     Dates: start: 20070101
  9. PURINETHOL [Concomitant]
     Indication: CROHN'S DISEASE
     Route: 048
     Dates: start: 20050101
  10. RENAL SOFT GELS [Concomitant]
     Indication: VITAMIN SUPPLEMENTATION
     Dosage: DOSE UNIT:UNKNOWN
     Route: 048
     Dates: start: 20071201
  11. OMEPRAZOLE [Concomitant]
     Indication: GASTROOESOPHAGEAL REFLUX DISEASE
     Route: 048
     Dates: start: 20050101

REACTIONS (11)
  - DYSGEUSIA [None]
  - DYSPHAGIA [None]
  - EATING DISORDER SYMPTOM [None]
  - INSOMNIA [None]
  - LACRIMATION INCREASED [None]
  - NAUSEA [None]
  - PARAESTHESIA ORAL [None]
  - RESTLESSNESS [None]
  - RETCHING [None]
  - THROAT TIGHTNESS [None]
  - UNRESPONSIVE TO STIMULI [None]
